FAERS Safety Report 5149543-6 (Version None)
Quarter: 2006Q4

REPORT INFORMATION
  Report Type: 
  Country: None (occurrence: None)
  Receive Date: 20061113
  Receipt Date: 20060406
  Transmission Date: 20070319
  Serious: No
  Sender: FDA-Public Use
  Company Number: US-GLAXOSMITHKLINE-A0600778A

PATIENT
  Age: 88 Year
  Sex: Male

DRUGS (8)
  1. COREG [Suspect]
     Indication: HYPERTENSION
     Dosage: 12.5MG TWICE PER DAY
     Route: 048
     Dates: start: 20060101
  2. LASIX [Concomitant]
  3. PLAVIX [Concomitant]
  4. IMDUR [Concomitant]
  5. PROSCAR [Concomitant]
  6. ZOCOR [Concomitant]
  7. LISINOPRIL [Concomitant]
  8. ASPIRIN [Concomitant]

REACTIONS (1)
  - LABILE BLOOD PRESSURE [None]
